FAERS Safety Report 5286535-0 (Version None)
Quarter: 2007Q2

REPORT INFORMATION
  Report Type: 
  Country: None (occurrence: None)
  Receive Date: 20070404
  Receipt Date: 20070326
  Transmission Date: 20071010
  Serious: Yes (Hospitalization)
  Sender: FDA-Public Use
  Company Number: US-SANOFI-SYNTHELABO-A03200601315

PATIENT
  Sex: Female

DRUGS (21)
  1. AMBIEN [Suspect]
     Indication: INSOMNIA
     Route: 048
     Dates: start: 19990101, end: 20050601
  2. IMITREX [Concomitant]
     Route: 048
  3. ZETIA [Concomitant]
     Dosage: UNK
     Route: 048
  4. PRAVACHOL [Concomitant]
     Route: 048
  5. PREVACID [Concomitant]
     Route: 048
  6. AXID [Concomitant]
     Route: 048
  7. ZOCOR [Concomitant]
     Route: 048
  8. BENTYL [Concomitant]
     Route: 048
  9. BENTYL [Concomitant]
     Dosage: UNK
     Route: 048
  10. CRESTOR [Concomitant]
     Route: 048
  11. SOMA [Concomitant]
     Route: 048
  12. WELLBUTRIN SR [Concomitant]
     Route: 048
  13. VYTORIN [Concomitant]
     Dosage: 10/80 MG
     Route: 048
  14. VIVELLE-DOT [Concomitant]
     Dosage: UNK
     Route: 062
  15. SULINDAC [Concomitant]
     Dosage: UNK
     Route: 048
  16. SINGULAIR [Concomitant]
     Dosage: UNK
     Route: 048
  17. NEXIUM [Concomitant]
     Dosage: UNK
     Route: 048
  18. LUNESTA [Concomitant]
     Dosage: UNK
     Route: 048
  19. CLARINEX [Concomitant]
     Dosage: UNK
     Route: 048
  20. ALLEGRA [Concomitant]
     Dosage: UNK
     Route: 048
  21. ACIPHEX [Concomitant]
     Dosage: UNK
     Route: 048

REACTIONS (19)
  - AMNESIA [None]
  - BINGE EATING [None]
  - DRUG INEFFECTIVE [None]
  - EATING DISORDER [None]
  - EMOTIONAL DISTRESS [None]
  - FALL [None]
  - FATIGUE [None]
  - GASTRIC DISORDER [None]
  - GASTRIC ULCER [None]
  - GASTROOESOPHAGEAL REFLUX DISEASE [None]
  - JOINT SPRAIN [None]
  - LIGAMENT SPRAIN [None]
  - NAUSEA [None]
  - PHAGOPHOBIA [None]
  - SLEEP WALKING [None]
  - TENOSYNOVITIS [None]
  - THERMAL BURN [None]
  - VOMITING [None]
  - WEIGHT INCREASED [None]
